FAERS Safety Report 9347461 (Version 5)
Quarter: 2013Q4

REPORT INFORMATION
  Report Type: Report from Study
  Country: GB (occurrence: GB)
  Receive Date: 20130614
  Receipt Date: 20131122
  Transmission Date: 20140711
  Serious: Yes (Hospitalization, Other)
  Sender: FDA-Public Use
  Company Number: GB-B.I. PHARMACEUTICALS,INC./RIDGEFIELD-2013-UK-01231UK

PATIENT
  Sex: Female

DRUGS (7)
  1. PRADAXA [Suspect]
     Indication: ATRIAL FIBRILLATION
     Dosage: 220 MG
     Route: 048
     Dates: start: 20120508, end: 20130513
  2. PRADAXA [Suspect]
     Dosage: 220 MG
     Route: 048
     Dates: start: 20130520
  3. BISOPROLOL [Concomitant]
     Indication: ANGINA PECTORIS
     Dosage: 10 MG
     Route: 048
  4. CO CODAMOL [Concomitant]
     Indication: PAIN
     Dosage: AS NEEDED
  5. OMEPRAZOLE [Concomitant]
     Indication: GASTRIC ULCER
     Dosage: 20 MG
     Route: 048
  6. BEMETAMIDE [Concomitant]
     Dosage: 1 MG
     Route: 048
  7. BRILIQUE [Concomitant]
     Indication: THROMBOSIS PROPHYLAXIS
     Dosage: 180 MG

REACTIONS (11)
  - Venous stent insertion [Unknown]
  - Stent placement [Unknown]
  - Arterial occlusive disease [Unknown]
  - Contusion [Unknown]
  - Sinus disorder [Unknown]
  - Epistaxis [Unknown]
  - Cystitis [Unknown]
  - Feeling cold [Unknown]
  - Pollakiuria [Unknown]
  - Nasopharyngitis [Recovered/Resolved]
  - Dyspnoea [Not Recovered/Not Resolved]
